FAERS Safety Report 4717672-4 (Version None)
Quarter: 2005Q3

REPORT INFORMATION
  Report Type: 
  Country: None (occurrence: None)
  Receive Date: 20050713
  Receipt Date: 20040817
  Transmission Date: 20060218
  Serious: Yes (Other)
  Sender: FDA-Public Use
  Company Number: 2004228769US

PATIENT
  Sex: Female

DRUGS (8)
  1. DEPO-MEDROL [Suspect]
     Dosage: 40-60 MG, EPIDURAL
     Route: 008
     Dates: start: 20020731
  2. DEPO-MEDROL [Suspect]
     Dosage: 40-60 MG, EPIDURAL
     Route: 008
     Dates: start: 20020813
  3. DEPO-MEDROL [Suspect]
     Dosage: 40-60 MG, EPIDURAL
     Route: 008
     Dates: start: 20020823
  4. DEPO-MEDROL [Suspect]
     Dosage: 40-60 MG, EPIDURAL
     Route: 008
     Dates: start: 20020920
  5. XYLOCAINE [Suspect]
     Dosage: 4 CC, EPIDURAL
     Route: 008
     Dates: start: 20020731
  6. XYLOCAINE [Suspect]
     Dosage: 4 CC, EPIDURAL
     Route: 008
     Dates: start: 20020813
  7. XYLOCAINE [Suspect]
     Dosage: 4 CC, EPIDURAL
     Route: 008
     Dates: start: 20020823
  8. XYLOCAINE [Suspect]
     Dosage: 4 CC, EPIDURAL
     Route: 008
     Dates: start: 20020920

REACTIONS (2)
  - BLADDER DISORDER [None]
  - INTESTINAL FUNCTIONAL DISORDER [None]
